FAERS Safety Report 17849090 (Version 1)
Quarter: 2020Q2

REPORT INFORMATION
  Report Type: Spontaneous
  Country: FR (occurrence: FR)
  Receive Date: 20200602
  Receipt Date: 20200602
  Transmission Date: 20200714
  Serious: Yes (Other)
  Sender: FDA-Public Use
  Company Number: FR-ABBVIE-20K-056-3426228-00

PATIENT
  Age: 52 Year
  Sex: Female
  Weight: 53 kg

DRUGS (7)
  1. KALETRA [Suspect]
     Active Substance: LOPINAVIR\RITONAVIR
     Indication: COVID-19 PNEUMONIA
     Dosage: COMPRIM? PELLICUL??200/50 MG
     Route: 048
     Dates: start: 20200326
  2. LOVENOX [Suspect]
     Active Substance: ENOXAPARIN SODIUM
     Indication: THROMBOSIS PROPHYLAXIS
     Route: 058
     Dates: start: 20200327
  3. ZITHROMAX [Suspect]
     Active Substance: AZITHROMYCIN DIHYDRATE
     Indication: PRODUCT USED FOR UNKNOWN INDICATION
     Dosage: 250 MG, COMPRIM? PELLICUL?
     Route: 048
     Dates: start: 20200329, end: 20200401
  4. PARACETAMOL B. BRAUN [Suspect]
     Active Substance: ACETAMINOPHEN
     Indication: PYREXIA
     Route: 042
     Dates: start: 20200326, end: 20200328
  5. CEFOTAXIME [Suspect]
     Active Substance: CEFOTAXIME SODIUM
     Indication: COVID-19 PNEUMONIA
     Dosage: MYLAN 1 G, POUDRE POUR SOLUTION INJECTABLE (IM-IV)
     Route: 042
     Dates: start: 20200329, end: 20200403
  6. LORMETAZEPAM ARROW [Suspect]
     Active Substance: LORMETAZEPAM
     Indication: PRODUCT USED FOR UNKNOWN INDICATION
     Dosage: COMPRIM? S?CABLE, 1 MG
     Route: 048
     Dates: start: 20200327, end: 20200402
  7. INEXIUM [Suspect]
     Active Substance: ESOMEPRAZOLE
     Indication: PRODUCT USED FOR UNKNOWN INDICATION
     Dosage: 40 MG, COMPRIM? GASTRO-R?SISTANT
     Route: 048
     Dates: start: 20200327

REACTIONS (1)
  - Hepatocellular injury [Not Recovered/Not Resolved]

NARRATIVE: CASE EVENT DATE: 20200331
